FAERS Safety Report 8811541 (Version 1)
Quarter: 2012Q4

REPORT INFORMATION
  Report Type: 
  Country: DE (occurrence: GB)
  Receive Date: 20120927
  Receipt Date: 20120927
  Transmission Date: 20130627
  Serious: Yes (Other)
  Sender: FDA-Public Use
  Company Number: GB-BRISTOL-MYERS SQUIBB COMPANY-16998460

PATIENT
  Age: 35 Year
  Sex: Female

DRUGS (2)
  1. METFORMIN HCL [Suspect]
  2. CLOZARIL [Suspect]
     Indication: SCHIZOPHRENIA
     Dosage: Tabs
     Route: 048
     Dates: start: 20030804

REACTIONS (3)
  - Overdose [Unknown]
  - White blood cell count decreased [Recovered/Resolved]
  - Malaise [Recovering/Resolving]
